FAERS Safety Report 23662648 (Version 1)
Quarter: 2024Q1

REPORT INFORMATION
  Report Type: Spontaneous
  Country: US (occurrence: None)
  Receive Date: 20240321
  Receipt Date: 20240321
  Transmission Date: 20240409
  Serious: Yes (unspecified)
  Sender: FDA-Public Use
  Company Number: None

PATIENT
  Age: 39 Year
  Sex: Female
  Weight: 64 kg

DRUGS (1)
  1. TRETINOIN [Suspect]
     Active Substance: TRETINOIN
     Indication: Solar lentigo

REACTIONS (4)
  - Dry eye [None]
  - Headache [None]
  - Ocular discomfort [None]
  - Head discomfort [None]

NARRATIVE: CASE EVENT DATE: 20240219
